FAERS Safety Report 8986629 (Version 1)
Quarter: 2012Q4

REPORT INFORMATION
  Report Type: 
  Country: NL (occurrence: NL)
  Receive Date: 20121226
  Receipt Date: 20121226
  Transmission Date: 20130627
  Serious: Yes (Death)
  Sender: FDA-Public Use
  Company Number: NL-ROCHE-1171830

PATIENT
  Age: 64 Year
  Sex: Male
  Weight: 75 kg

DRUGS (7)
  1. INTERFERON ALFA-2A [Suspect]
     Indication: MULTIPLE MYELOMA
     Dosage: extra info: 1 dd per week, later per dag 3 milj IE
     Route: 042
     Dates: start: 201205
  2. AZITHROMYCIN [Suspect]
     Indication: RESPIRATORY TRACT INFECTION
     Dosage: 1 keer per dag 1 stuk(s), extra info: 1 dd 500 mg
     Route: 048
     Dates: start: 20121010, end: 20121014
  3. PANTOZOL [Concomitant]
     Dosage: extra info: 40 mg
     Route: 048
     Dates: start: 201208
  4. FOLIUMZUUR [Concomitant]
     Dosage: extra info: 5 mg
     Route: 048
     Dates: start: 2011
  5. PENTAMIDINE [Concomitant]
     Dosage: extra info: 300 milligram
     Route: 065
     Dates: start: 201205
  6. PAMIDRONIAN [Concomitant]
     Dosage: extra info: 1x per 6 weken 30 mg
     Route: 042
     Dates: start: 2011
  7. LENALIDOMIDE [Concomitant]
     Dosage: extra info: 25 mg
     Route: 048
     Dates: start: 201201

REACTIONS (1)
  - Acute hepatic failure [Fatal]
